FAERS Safety Report 20711332 (Version 1)
Quarter: 2022Q2

REPORT INFORMATION
  Report Type: Report from Study
  Country: IT (occurrence: IT)
  Receive Date: 20220414
  Receipt Date: 20220414
  Transmission Date: 20220721
  Serious: Yes (Hospitalization)
  Sender: FDA-Public Use
  Company Number: IT-ROCHE-2315958

PATIENT
  Age: 58 Year
  Sex: Female
  Weight: 63 kg

DRUGS (7)
  1. PACLITAXEL [Suspect]
     Active Substance: PACLITAXEL
     Indication: Breast cancer
     Dosage: UNK
     Route: 042
  2. TRASTUZUMAB [Suspect]
     Active Substance: TRASTUZUMAB
     Indication: Breast cancer
     Dosage: 100 MILLIGRAM ((LAST DOSE OF TRASTUZUMAB PRIOE TO SAE: 29/APR/2019))
     Route: 041
     Dates: start: 20190428, end: 20190429
  3. TRASTUZUMAB [Suspect]
     Active Substance: TRASTUZUMAB
     Dosage: 1 DOSAGE FORM, Q3W(LAST DOSE OF TRASTUZUMAB PRIOE TO SAE: 29/APR/2019 (100 MG))
     Route: 042
     Dates: start: 20190428
  4. TRASTUZUMAB [Suspect]
     Active Substance: TRASTUZUMAB
     Dosage: UNK UNK, Q3W (LAST DOSE OF TRASTUZUMAB PRIOE TO SAE: 29/APR/2019 (100 MG))
     Route: 042
     Dates: start: 20190429, end: 20190429
  5. ATEZOLIZUMAB [Suspect]
     Active Substance: ATEZOLIZUMAB
     Indication: Breast cancer
     Dosage: 1200 MILLIGRAM, Q3W (LAST DOSE PRIOR TO SAE: 29/APR/2019)
     Route: 042
     Dates: start: 20190428, end: 20190429
  6. PERTUZUMAB [Suspect]
     Active Substance: PERTUZUMAB
     Indication: Breast cancer
     Dosage: 420 MILLIGRAM, Q3W, DATE OF MOST RECENT DOSE : 29/APR/2019
     Route: 042
  7. PERTUZUMAB [Suspect]
     Active Substance: PERTUZUMAB
     Dosage: 840 MILLIGRAM, Q3W, DATE OF MOST RECENT DOSE : 29/APR/2019
     Route: 042
     Dates: start: 20190429, end: 20190429

REACTIONS (2)
  - Infusion related reaction [Recovered/Resolved]
  - Vomiting [Not Recovered/Not Resolved]

NARRATIVE: CASE EVENT DATE: 20190428
